FAERS Safety Report 5237680-7 (Version None)
Quarter: 2007Q1

REPORT INFORMATION
  Report Type: 
  Country: None (occurrence: None)
  Receive Date: 20070214
  Receipt Date: 20070201
  Transmission Date: 20070707
  Serious: Yes (Other)
  Sender: FDA-Public Use
  Company Number: DE-ELI_LILLY_AND_COMPANY-DE200702000624

PATIENT
  Age: 8 Year
  Sex: Male
  Weight: 22 kg

DRUGS (3)
  1. STRATTERA [Suspect]
     Indication: ATTENTION DEFICIT/HYPERACTIVITY DISORDER
  2. STRATTERA [Suspect]
     Dosage: 18 MG, DAILY (1/D)
     Route: 048
     Dates: start: 20070101
  3. RITALIN [Concomitant]
     Dosage: 10 MG, EACH MORNING
     Route: 048

REACTIONS (6)
  - ABDOMINAL PAIN [None]
  - DEPRESSED LEVEL OF CONSCIOUSNESS [None]
  - DIZZINESS [None]
  - HEART RATE DECREASED [None]
  - HYPERHIDROSIS [None]
  - PALPITATIONS [None]
